FAERS Safety Report 7802368-2 (Version None)
Quarter: 2011Q4

REPORT INFORMATION
  Report Type: 
  Country: None (occurrence: None)
  Receive Date: 20111007
  Receipt Date: 20110922
  Transmission Date: 20120403
  Serious: Yes (Hospitalization)
  Sender: FDA-Public Use
  Company Number: JP-SANOFI-AVENTIS-200911241EU

PATIENT
  Age: 77 Year
  Sex: Female
  Weight: 79 kg

DRUGS (13)
  1. XELODA [Suspect]
     Indication: COLON CANCER
     Route: 048
  2. CALCIUM CARBONATE [Suspect]
     Indication: OSTEOPOROSIS
     Dosage: DOSE AS USED: UNK
     Route: 048
     Dates: start: 20080701
  3. REPARIL [Concomitant]
  4. LOVENOX [Suspect]
     Indication: THROMBOSIS
     Dosage: DOSE AS USED: UNK
     Route: 058
     Dates: start: 20081201
  5. LANSOPRAZOLE [Suspect]
     Indication: PROPHYLAXIS
     Dosage: DOSE AS USED: UNK
     Route: 048
     Dates: start: 20081201
  6. REQUIP [Suspect]
     Indication: RESTLESS LEGS SYNDROME
     Dosage: DOSE AS USED: UNK
     Route: 048
     Dates: start: 20081218
  7. XELODA [Suspect]
     Route: 048
     Dates: start: 20080930
  8. LEVOTHYROXINE SODIUM [Suspect]
     Indication: THYROIDECTOMY
     Dosage: DOSE AS USED: UNK
     Route: 048
     Dates: start: 20070622
  9. PANTOPRAZOLE [Suspect]
     Indication: PROPHYLAXIS
     Dosage: DOSE AS USED: UNK
     Route: 048
     Dates: start: 20080701, end: 20081201
  10. CALCIUM CARBONATE [Concomitant]
  11. COLECALCIFEROL [Concomitant]
  12. DANCOR [Suspect]
     Dosage: DOSE AS USED: UNK
     Route: 048
     Dates: start: 20080801
  13. BISOPROLOL FUMARATE [Suspect]
     Indication: HYPERTENSION
     Dosage: DOSE AS USED: UNK
     Route: 048
     Dates: start: 20080801

REACTIONS (2)
  - ASTHENIA [None]
  - VENOUS THROMBOSIS [None]
